FAERS Safety Report 12492978 (Version 1)
Quarter: 2016Q2

REPORT INFORMATION
  Report Type: Report from Study
  Country: US (occurrence: US)
  Receive Date: 20160623
  Receipt Date: 20160623
  Transmission Date: 20160815
  Serious: Yes (Hospitalization, Other)
  Sender: FDA-Public Use
  Company Number: US-AMGEN-USASL2016079766

PATIENT
  Age: 54 Year
  Sex: Male

DRUGS (1)
  1. ENBREL [Suspect]
     Active Substance: ETANERCEPT
     Indication: RHEUMATOID ARTHRITIS
     Dosage: UNK
     Route: 065
     Dates: start: 2000

REACTIONS (6)
  - Lumbar vertebral fracture [Unknown]
  - Fall [Unknown]
  - Urticaria [Unknown]
  - Scleroderma [Unknown]
  - Pulmonary hypertension [Unknown]
  - Rheumatoid factor increased [Unknown]

NARRATIVE: CASE EVENT DATE: 2016
